FAERS Safety Report 16470590 (Version 1)
Quarter: 2019Q2

REPORT INFORMATION
  Report Type: Spontaneous
  Country: JP (occurrence: JP)
  Receive Date: 20190624
  Receipt Date: 20190624
  Transmission Date: 20190711
  Serious: Yes (Other)
  Sender: FDA-Public Use
  Company Number: JP-GLAXOSMITHKLINE-JP2019JPN109492

PATIENT
  Age: 30 Year
  Sex: Female

DRUGS (4)
  1. ALLERMIST [Suspect]
     Active Substance: FLUTICASONE FUROATE
     Indication: EMPYEMA
     Dosage: UNK
     Dates: start: 20190617
  2. RISPERDAL [Concomitant]
     Active Substance: RISPERIDONE
     Dosage: UNK
  3. ALLERMIST [Suspect]
     Active Substance: FLUTICASONE FUROATE
     Indication: HYPERVENTILATION
     Dosage: UNK
     Route: 045
     Dates: start: 201902
  4. CETIRIZINE [Concomitant]
     Active Substance: CETIRIZINE HYDROCHLORIDE
     Dosage: UNK

REACTIONS (8)
  - Product use in unapproved indication [Unknown]
  - Urticaria chronic [Unknown]
  - Rhinorrhoea [Unknown]
  - Hypersensitivity [Unknown]
  - Empyema [Recovered/Resolved]
  - Anxiety [Unknown]
  - Nasal congestion [Unknown]
  - Inappropriate schedule of product administration [Unknown]

NARRATIVE: CASE EVENT DATE: 20190617
